FAERS Safety Report 12285120 (Version 5)
Quarter: 2017Q2

REPORT INFORMATION
  Report Type: Report from Study
  Country: US (occurrence: US)
  Receive Date: 20160420
  Receipt Date: 20170404
  Transmission Date: 20170830
  Serious: No
  Sender: FDA-Public Use
  Company Number: PHEH2016US009619

PATIENT
  Age: 8 Year
  Sex: Female

DRUGS (5)
  1. SABRIL [Concomitant]
     Active Substance: VIGABATRIN
     Indication: PRODUCT USED FOR UNKNOWN INDICATION
     Route: 065
  2. LAMICTAL [Concomitant]
     Active Substance: LAMOTRIGINE
     Indication: PRODUCT USED FOR UNKNOWN INDICATION
     Route: 065
  3. AFINITOR DISPERZ [Suspect]
     Active Substance: EVEROLIMUS
     Indication: GANGLIOGLIOMA
     Dosage: 5 MG, QD
     Route: 048
  4. TRAZODONE [Concomitant]
     Active Substance: TRAZODONE HYDROCHLORIDE
     Indication: PRODUCT USED FOR UNKNOWN INDICATION
     Dosage: UNK
     Route: 065
  5. AFINITOR DISPERZ [Suspect]
     Active Substance: EVEROLIMUS
     Indication: ASTROCYTOMA, LOW GRADE
     Dosage: 5 MG, QD
     Route: 048
     Dates: start: 20160309

REACTIONS (10)
  - Eating disorder [Unknown]
  - Malaise [Recovered/Resolved]
  - Pyrexia [Unknown]
  - Influenza [Recovering/Resolving]
  - Mouth ulceration [Recovering/Resolving]
  - Sinusitis [Recovered/Resolved]
  - Viral upper respiratory tract infection [Recovered/Resolved]
  - Mood altered [Unknown]
  - Gastroenteritis viral [Unknown]
  - Cough [Unknown]

NARRATIVE: CASE EVENT DATE: 20160331
